FAERS Safety Report 7954921-3 (Version None)
Quarter: 2011Q4

REPORT INFORMATION
  Report Type: 
  Country: None (occurrence: None)
  Receive Date: 20111202
  Receipt Date: 20111123
  Transmission Date: 20120403
  Serious: Yes (Other)
  Sender: FDA-Public Use
  Company Number: CA-JNJFOC-20111110182

PATIENT
  Sex: Female
  Weight: 64 kg

DRUGS (4)
  1. IMURAN [Concomitant]
     Dosage: 3 1/2 TABS DAILY
     Route: 065
  2. REMICADE [Suspect]
     Indication: CROHN'S DISEASE
     Route: 042
     Dates: start: 20100324
  3. ACIDOPHILUS [Concomitant]
  4. YAZ [Concomitant]

REACTIONS (2)
  - EYE INFECTION [None]
  - CYST RUPTURE [None]
